FAERS Safety Report 18096916 (Version 2)
Quarter: 2020Q3

REPORT INFORMATION
  Report Type: Spontaneous
  Country: IT (occurrence: IT)
  Receive Date: 20200731
  Receipt Date: 20200917
  Transmission Date: 20201103
  Serious: Yes (Death)
  Sender: FDA-Public Use
  Company Number: IT-ASTRAZENECA-2020SE95643

PATIENT
  Age: 70 Year
  Sex: Male

DRUGS (24)
  1. AMIODARONE [Concomitant]
     Active Substance: AMIODARONE
  2. VANCOMYCIN [Concomitant]
     Active Substance: VANCOMYCIN
  3. ARIXTRA [Concomitant]
     Active Substance: FONDAPARINUX SODIUM
     Dosage: 7.5 MG/0.6 ML, PRE?FILLED SYRINGE
     Route: 065
  4. TOCILIZUMAB. [Concomitant]
     Active Substance: TOCILIZUMAB
  5. FLUCONAZOLE. [Concomitant]
     Active Substance: FLUCONAZOLE
  6. METHYLPREDNISOLONE. [Concomitant]
     Active Substance: METHYLPREDNISOLONE
     Route: 065
  7. CERNEVIT [Concomitant]
     Active Substance: VITAMINS
  8. MIDAZOLAM. [Concomitant]
     Active Substance: MIDAZOLAM
  9. MEROPENEM. [Concomitant]
     Active Substance: MEROPENEM
  10. DARUNAVIR [Concomitant]
     Active Substance: DARUNAVIR
  11. RITONAVIR. [Concomitant]
     Active Substance: RITONAVIR
  12. HYDROCORTISONE ACETATE. [Concomitant]
     Active Substance: HYDROCORTISONE ACETATE
  13. OMEPRAZOLE. [Concomitant]
     Active Substance: OMEPRAZOLE
  14. DEXAMETHASONE. [Concomitant]
     Active Substance: DEXAMETHASONE
  15. HYDROXYCHLOROQUINE SULFATE. [Concomitant]
     Active Substance: HYDROXYCHLOROQUINE SULFATE
  16. HALOPERIDOL. [Concomitant]
     Active Substance: HALOPERIDOL
  17. LEDERFOLIN [Concomitant]
     Active Substance: LEUCOVORIN CALCIUM
  18. CLEXANE T [Concomitant]
     Active Substance: ENOXAPARIN SODIUM
  19. CEFTRIAXONE. [Concomitant]
     Active Substance: CEFTRIAXONE
  20. LAEVOLAC [Concomitant]
     Active Substance: LACTULOSE
  21. BENERVA [Concomitant]
     Active Substance: THIAMINE HYDROCHLORIDE
  22. REMIFENTANIL [Concomitant]
     Active Substance: REMIFENTANIL
  23. QUETIAPINE. [Suspect]
     Active Substance: QUETIAPINE
     Indication: AGITATION
     Route: 048
     Dates: start: 20200326, end: 20200503
  24. ACETYLCYSTEINE. [Concomitant]
     Active Substance: ACETYLCYSTEINE

REACTIONS (1)
  - Anaemia macrocytic [Fatal]

NARRATIVE: CASE EVENT DATE: 20200326
